FAERS Safety Report 5922349-3 (Version None)
Quarter: 2008Q4

REPORT INFORMATION
  Report Type: 
  Country: None (occurrence: None)
  Receive Date: 20081017
  Receipt Date: 20081010
  Transmission Date: 20090506
  Serious: Yes (Hospitalization)
  Sender: FDA-Public Use
  Company Number: JP-BRISTOL-MYERS SQUIBB COMPANY-14327340

PATIENT
  Age: 73 Year
  Sex: Male

DRUGS (4)
  1. CARBIDOPA + LEVODOPA [Suspect]
     Indication: PARKINSON'S DISEASE
     Dosage: (100MG/TID)30JUL07-26AUG08(394 DAY);ON 27AUG2008 DOSE REDUCED TO 100MG/BID;28AUG08-UNK(100MG/OD)
     Route: 048
     Dates: start: 20070730
  2. LOXONIN [Suspect]
     Indication: BACK PAIN
     Route: 048
     Dates: start: 20050526, end: 20080826
  3. LOXONIN [Suspect]
     Indication: HEADACHE
     Route: 048
     Dates: start: 20050526, end: 20080826
  4. FAMOTIDINE TABS [Suspect]
     Indication: GASTRIC ULCER
     Route: 048
     Dates: start: 20030630, end: 20080826

REACTIONS (2)
  - RENAL FAILURE ACUTE [None]
  - TUBULOINTERSTITIAL NEPHRITIS [None]
